FAERS Safety Report 18155309 (Version 1)
Quarter: 2020Q3

REPORT INFORMATION
  Report Type: Other
  Country: US (occurrence: US)
  Receive Date: 20200817
  Receipt Date: 20200817
  Transmission Date: 20201103
  Serious: Yes (Other)
  Sender: FDA-Public Use
  Company Number: US-GUARDIAN DRUG COMPANY-2088675

PATIENT
  Age: 37 Year
  Sex: Female

DRUGS (2)
  1. BISACODYL. [Concomitant]
     Active Substance: BISACODYL
     Route: 065
  2. CHILDRENS IBUPROFEN [Suspect]
     Active Substance: IBUPROFEN
     Indication: PAIN IN EXTREMITY
     Route: 065

REACTIONS (2)
  - Overdose [Unknown]
  - Drug ineffective [Unknown]
